FAERS Safety Report 8903907 (Version 2)
Quarter: 2012Q4

REPORT INFORMATION
  Report Type: 
  Country: US (occurrence: US)
  Receive Date: 20121113
  Receipt Date: 20121211
  Transmission Date: 20130627
  Serious: Yes (Hospitalization)
  Sender: FDA-Public Use
  Company Number: PHEH2012US022342

PATIENT
  Sex: Male
  Weight: 83.9 kg

DRUGS (11)
  1. TASIGNA [Suspect]
     Indication: CHRONIC MYELOID LEUKAEMIA
     Dosage: 200 mg
     Route: 048
     Dates: start: 201207, end: 201208
  2. ACTOS [Concomitant]
     Dosage: 15 mg, UNK
  3. EXFORGE [Concomitant]
  4. TOPROL XL [Concomitant]
     Dosage: 25 mg, UNK
  5. SIMVASTATIN [Concomitant]
     Dosage: 10 mg, UNK
  6. PLAQUENIL [Concomitant]
     Dosage: 200 mg, UNK
  7. VIAGRA [Concomitant]
     Dosage: 25 mg, UNK
  8. PULMICORT [Concomitant]
     Dosage: 180 ug, UNK
  9. AMBIEN [Concomitant]
     Dosage: 5 mg, UNK
  10. PROTONIX [Concomitant]
     Dosage: 20 mg, UNK
  11. SYNTHROID [Concomitant]
     Dosage: 75 ug, UNK

REACTIONS (4)
  - Myocardial infarction [Recovering/Resolving]
  - Pneumonia aspiration [Recovering/Resolving]
  - Nausea [Recovered/Resolved]
  - Vomiting [Recovered/Resolved]
